FAERS Safety Report 5069386-1 (Version None)
Quarter: 2006Q3

REPORT INFORMATION
  Report Type: 
  Country: None (occurrence: None)
  Receive Date: 20060731
  Receipt Date: 20060718
  Transmission Date: 20061208
  Serious: Yes (Other)
  Sender: FDA-Public Use
  Company Number: 2006088730

PATIENT
  Age: 43 Year
  Sex: Male
  Weight: 83.0083 kg

DRUGS (4)
  1. GEODON [Suspect]
     Indication: BIPOLAR DISORDER
     Dosage: 240 MG (80 MG, 3 IN 1 D), ORAL
     Route: 048
     Dates: start: 20060101
  2. ALL OTHER THERAPEUTIC PRODUCTS [Concomitant]
  3. WELLBUTRIN [Concomitant]
  4. LITHIUM [Concomitant]

REACTIONS (2)
  - ENURESIS [None]
  - LIVER DISORDER [None]
